FAERS Safety Report 6590406-7 (Version None)
Quarter: 2010Q1

REPORT INFORMATION
  Report Type: 
  Country: None (occurrence: None)
  Receive Date: 20100219
  Receipt Date: 20100205
  Transmission Date: 20100710
  Serious: Yes (Hospitalization, Other)
  Sender: FDA-Public Use
  Company Number: DE-CELGENEUS-062-21880-09111201

PATIENT
  Age: 71 Year
  Sex: Male
  Weight: 80 kg

DRUGS (4)
  1. REVLIMID [Suspect]
     Indication: PROSTATE CANCER
     Route: 048
     Dates: start: 20090914, end: 20091217
  2. REVLIMID [Suspect]
     Route: 048
     Dates: start: 20091218
  3. DEXAMETHASONE [Suspect]
     Indication: PROSTATE CANCER
     Route: 048
     Dates: start: 20081001
  4. CELECOXIB [Concomitant]
     Indication: PROSTATE CANCER
     Route: 065
     Dates: start: 20081001

REACTIONS (6)
  - ARTHRALGIA [None]
  - CUSHING'S SYNDROME [None]
  - DEHYDRATION [None]
  - FATIGUE [None]
  - NEUROPATHY PERIPHERAL [None]
  - SYNCOPE [None]
